FAERS Safety Report 7647689-1 (Version None)
Quarter: 2011Q3

REPORT INFORMATION
  Report Type: 
  Country: None (occurrence: None)
  Receive Date: 20110801
  Receipt Date: 20110801
  Transmission Date: 20111222
  Serious: No
  Sender: FDA-Public Use
  Company Number: None

PATIENT
  Sex: Female
  Weight: 63.502 kg

DRUGS (1)
  1. ADVAIR DISKUS 100/50 [Suspect]
     Indication: ASTHMA
     Dosage: 1 INHALATION
     Route: 048
     Dates: start: 20110411, end: 20110729

REACTIONS (3)
  - CHOKING [None]
  - COUGH [None]
  - FOREIGN BODY [None]
